FAERS Safety Report 7807107-7 (Version None)
Quarter: 2011Q4

REPORT INFORMATION
  Report Type: 
  Country: None (occurrence: None)
  Receive Date: 20111011
  Receipt Date: 20111007
  Transmission Date: 20120403
  Serious: Yes (Hospitalization)
  Sender: FDA-Public Use
  Company Number: GB-TEVA-304030ISR

PATIENT
  Age: 54 Year
  Sex: Male

DRUGS (13)
  1. EXENATIDE [Suspect]
     Dosage: 10 MICROGRAM;
  2. ASPIRIN [Concomitant]
  3. LEVOTHYROXINE SODIUM [Concomitant]
  4. METFORMIN HYDROCHLORIDE [Suspect]
     Dosage: RESTARTED DOSE
  5. METFORMIN HYDROCHLORIDE [Suspect]
     Indication: TYPE 2 DIABETES MELLITUS
     Dosage: 2 GRAM;
     Route: 048
  6. CANDESARTAN CILEXETIL [Suspect]
     Route: 048
  7. QUININE SULFATE [Concomitant]
  8. ROSUVASTATIN [Concomitant]
  9. EXENATIDE [Suspect]
     Dosage: 20 MICROGRAM;
  10. GLICLAZIDE [Concomitant]
     Indication: TYPE 2 DIABETES MELLITUS
     Dosage: 320 MILLIGRAM;
  11. AMITRIPTYLINE HCL [Concomitant]
  12. INSULIN GLARGINE [Concomitant]
     Indication: TYPE 2 DIABETES MELLITUS
     Dosage: 116 UNITES
  13. PREGABALIN [Concomitant]

REACTIONS (1)
  - RENAL FAILURE ACUTE [None]
